FAERS Safety Report 20422809 (Version 1)
Quarter: 2022Q1

REPORT INFORMATION
  Report Type: Spontaneous
  Country: CA (occurrence: None)
  Receive Date: 20220203
  Receipt Date: 20220203
  Transmission Date: 20220423
  Serious: Yes (Other)
  Sender: FDA-Public Use
  Company Number: 2022A046522

PATIENT
  Sex: Female

DRUGS (26)
  1. BUDESONIDE [Suspect]
     Active Substance: BUDESONIDE
     Route: 055
  2. ACETAMINOPHEN [Suspect]
     Active Substance: ACETAMINOPHEN
     Indication: Product used for unknown indication
  3. ADALIMUMAB [Suspect]
     Active Substance: ADALIMUMAB
     Indication: Product used for unknown indication
  4. ALPRAZOLAM [Suspect]
     Active Substance: ALPRAZOLAM
     Indication: Product used for unknown indication
  5. AMOXICILLIN [Suspect]
     Active Substance: AMOXICILLIN
     Indication: Product used for unknown indication
  6. ATORVASTATIN CALCIUM [Suspect]
     Active Substance: ATORVASTATIN CALCIUM
     Indication: Product used for unknown indication
  7. GLYCERIN [Suspect]
     Active Substance: GLYCERIN
     Indication: Product used for unknown indication
  8. GRAMICIDIN\NEOMYCIN\POLYMYXIN B SULFATE [Suspect]
     Active Substance: GRAMICIDIN\NEOMYCIN\POLYMYXIN B SULFATE
     Indication: Product used for unknown indication
  9. HYDROCHLOROTHIAZIDE [Suspect]
     Active Substance: HYDROCHLOROTHIAZIDE
     Indication: Product used for unknown indication
  10. HYDROMORPHONE [Suspect]
     Active Substance: HYDROMORPHONE
     Indication: Product used for unknown indication
  11. MESALAMINE [Suspect]
     Active Substance: MESALAMINE
     Indication: Product used for unknown indication
  12. METRONIDAZOLE [Suspect]
     Active Substance: METRONIDAZOLE
     Indication: Product used for unknown indication
  13. MORPHINE SULFATE [Suspect]
     Active Substance: MORPHINE SULFATE
     Indication: Product used for unknown indication
  14. MUPIROCIN [Suspect]
     Active Substance: MUPIROCIN
     Indication: Product used for unknown indication
  15. NADOLOL [Suspect]
     Active Substance: NADOLOL
     Indication: Product used for unknown indication
  16. NICODERM CQ [Suspect]
     Active Substance: NICOTINE
     Indication: Product used for unknown indication
  17. NICOTINE [Suspect]
     Active Substance: NICOTINE
     Indication: Product used for unknown indication
  18. PANTOPRAZOLE [Suspect]
     Active Substance: PANTOPRAZOLE
     Indication: Product used for unknown indication
  19. PREDNISONE [Suspect]
     Active Substance: PREDNISONE
     Indication: Product used for unknown indication
  20. PREGABALIN [Suspect]
     Active Substance: PREGABALIN
     Indication: Product used for unknown indication
  21. REFRESH TEARS [Suspect]
     Active Substance: CARBOXYMETHYLCELLULOSE SODIUM
     Indication: Product used for unknown indication
  22. SODIUM BICARBONATE\SODIUM CHLORIDE [Suspect]
     Active Substance: SODIUM BICARBONATE\SODIUM CHLORIDE
     Indication: Product used for unknown indication
  23. SULFAMETHOXAZOLE\TRIMETHOPRIM [Suspect]
     Active Substance: SULFAMETHOXAZOLE\TRIMETHOPRIM
     Indication: Product used for unknown indication
  24. TRIAMCINOLONE ACETONIDE [Suspect]
     Active Substance: TRIAMCINOLONE ACETONIDE
     Indication: Product used for unknown indication
  25. VALSARTAN [Concomitant]
     Active Substance: VALSARTAN
  26. VITAMIN D3 [Suspect]
     Active Substance: CHOLECALCIFEROL
     Indication: Product used for unknown indication

REACTIONS (2)
  - Macular degeneration [Unknown]
  - Drug ineffective [Unknown]
